FAERS Safety Report 6825371-8 (Version None)
Quarter: 2010Q3

REPORT INFORMATION
  Report Type: 
  Country: None (occurrence: None)
  Receive Date: 20100708
  Receipt Date: 20070111
  Transmission Date: 20110219
  Serious: No
  Sender: FDA-Public Use
  Company Number: US-PFIZER INC-2007003108

PATIENT
  Sex: Female

DRUGS (4)
  1. CHANTIX [Suspect]
     Dates: start: 20061101
  2. SYNTHROID [Concomitant]
  3. SIMVASTATIN [Concomitant]
  4. PREMARIN [Concomitant]

REACTIONS (1)
  - NAUSEA [None]
